FAERS Safety Report 20877257 (Version 2)
Quarter: 2022Q3

REPORT INFORMATION
  Report Type: Other
  Country: US (occurrence: None)
  Receive Date: 20220526
  Receipt Date: 20220701
  Transmission Date: 20221026
  Serious: Yes (Other)
  Sender: FDA-Public Use
  Company Number: US-ROCHE-3103668

PATIENT
  Sex: Female

DRUGS (5)
  1. XELODA [Suspect]
     Active Substance: CAPECITABINE
     Indication: Breast cancer metastatic
     Dosage: TOMAR 1 TABLETA DOS VECES AL DIA 1 SEMANAS, Y NO LAS TOME 1 SEMANAS (TAKE 1 TABLET TWICE A DAY FOR 1
     Route: 048
  2. XELODA [Suspect]
     Active Substance: CAPECITABINE
     Indication: Brain neoplasm malignant
     Dosage: TOMAR 2 TABLETAS DOS VECES AL DIA 1 SEMANAS, Y NO LAS TOME 1 SEMANAS (TAKE 2 TABLETS TWICE DAILY FOR
     Route: 048
  3. IODINE [Concomitant]
     Active Substance: IODINE
  4. HYDROMORPHONE [Concomitant]
     Active Substance: HYDROMORPHONE
  5. MEPERIDINE [Concomitant]
     Active Substance: MEPERIDINE

REACTIONS (2)
  - Speech disorder [Unknown]
  - Neoplasm malignant [Unknown]
